FAERS Safety Report 15620063 (Version 1)
Quarter: 2018Q4

REPORT INFORMATION
  Report Type: Report from Study
  Country: NL (occurrence: NL)
  Receive Date: 20181115
  Receipt Date: 20181115
  Transmission Date: 20190205
  Serious: Yes (Other)
  Sender: FDA-Public Use
  Company Number: NL-ACCORD-092201

PATIENT
  Age: 58 Year
  Sex: Male

DRUGS (1)
  1. METHOTREXATE. [Suspect]
     Active Substance: METHOTREXATE
     Indication: RHEUMATOID ARTHRITIS
     Dosage: 1?TIMES?PER?WEEK?6
     Dates: start: 20090428, end: 20090617

REACTIONS (3)
  - Nausea [Unknown]
  - Dermatitis allergic [Unknown]
  - Headache [Unknown]

NARRATIVE: CASE EVENT DATE: 20090617
